FAERS Safety Report 17156450 (Version 1)
Quarter: 2019Q4

REPORT INFORMATION
  Report Type: Spontaneous
  Country: DK (occurrence: DK)
  Receive Date: 20191216
  Receipt Date: 20191216
  Transmission Date: 20200122
  Serious: Yes (Other)
  Sender: FDA-Public Use
  Company Number: DK-ROCHE-2491171

PATIENT
  Age: 41 Year
  Sex: Male

DRUGS (3)
  1. ACETYLSALICYLIC ACID [Concomitant]
     Active Substance: ASPIRIN
     Indication: ANTICOAGULANT THERAPY
     Route: 048
     Dates: start: 20150904
  2. PEGASYS [Suspect]
     Active Substance: PEGINTERFERON ALFA-2A
     Indication: MYELOPROLIFERATIVE NEOPLASM
     Route: 058
     Dates: start: 20170914, end: 20190625
  3. PARACETAMOL [Concomitant]
     Active Substance: ACETAMINOPHEN
     Indication: PAIN
     Route: 048
     Dates: start: 20170306

REACTIONS (7)
  - Alanine aminotransferase increased [Recovered/Resolved]
  - Blood immunoglobulin G increased [Unknown]
  - Autoimmune hepatitis [Unknown]
  - Hepatic fibrosis [Unknown]
  - Smooth muscle antibody positive [Unknown]
  - Aspartate aminotransferase increased [Recovered/Resolved]
  - Antinuclear antibody positive [Unknown]

NARRATIVE: CASE EVENT DATE: 201901
